FAERS Safety Report 5665643-6 (Version None)
Quarter: 2008Q1

REPORT INFORMATION
  Report Type: 
  Country: None (occurrence: None)
  Receive Date: 20080314
  Receipt Date: 20070221
  Transmission Date: 20080703
  Serious: No
  Sender: FDA-Public Use
  Company Number: US-ABBOTT-07P-163-0429155-00

PATIENT
  Sex: Male

DRUGS (1)
  1. HUMIRA [Suspect]

REACTIONS (2)
  - BRONCHITIS [None]
  - FEELING ABNORMAL [None]
